FAERS Safety Report 4439943-1 (Version None)
Quarter: 2004Q3

REPORT INFORMATION
  Report Type: 
  Country: None (occurrence: None)
  Receive Date: 20040902
  Receipt Date: 20040825
  Transmission Date: 20050211
  Serious: Yes (Other)
  Sender: FDA-Public Use
  Company Number: PHBS2004IL11240

PATIENT
  Age: 76 Year
  Sex: Female

DRUGS (4)
  1. HYDROCHLOROTHIAZIDE [Suspect]
     Indication: HYPERTENSION
  2. DORZOLAMIDE [Suspect]
     Indication: OPEN ANGLE GLAUCOMA
     Dosage: 2 %, BID
  3. VERAPAMIL [Concomitant]
     Indication: HYPERTENSION
  4. TIMOLOL 0.5% (NVO) [Suspect]
     Indication: OPEN ANGLE GLAUCOMA
     Dosage: .5 %, BID

REACTIONS (4)
  - CHOROIDAL DETACHMENT [None]
  - MYOPIA [None]
  - STAPHYLOMA [None]
  - VISUAL ACUITY REDUCED [None]
